FAERS Safety Report 4736158-4 (Version None)
Quarter: 2005Q3

REPORT INFORMATION
  Report Type: 
  Country: None (occurrence: None)
  Receive Date: 20050728
  Receipt Date: 20050425
  Transmission Date: 20060218
  Serious: No
  Sender: FDA-Public Use
  Company Number: 200511792US

PATIENT
  Age: 55 Year
  Sex: Male
  Weight: 113 kg

DRUGS (7)
  1. KETEK [Suspect]
     Indication: NASOPHARYNGITIS
     Dosage: 400 MG ONCE
     Dates: start: 20050225, end: 20050225
  2. AVANDIA [Concomitant]
  3. HYDROCHLOROTHIAZIDE [Concomitant]
  4. LISINOPRIL [Concomitant]
  5. AMARYL [Concomitant]
  6. NORVASC [Concomitant]
  7. METOPROLOL SUCCINATE [Concomitant]

REACTIONS (5)
  - ANXIETY [None]
  - DIARRHOEA [None]
  - DISCOMFORT [None]
  - HEART RATE INCREASED [None]
  - INITIAL INSOMNIA [None]
